FAERS Safety Report 9088462 (Version 1)
Quarter: 2013Q1

REPORT INFORMATION
  Report Type: Spontaneous
  Country: US (occurrence: US)
  Receive Date: 20130131
  Receipt Date: 20130131
  Transmission Date: 20140127
  Serious: Yes (Other)
  Sender: FDA-Public Use
  Company Number: US-009507513-1301USA014071

PATIENT
  Sex: Female

DRUGS (5)
  1. FOSAMAX [Suspect]
     Dosage: UNK
     Route: 048
     Dates: start: 2001, end: 2011
  2. FOSAMAX PLUS D [Suspect]
     Dosage: UNK
     Route: 048
     Dates: start: 2001, end: 2011
  3. ALENDRONATE SODIUM [Suspect]
     Dosage: UNK
     Route: 048
     Dates: start: 2001, end: 2011
  4. BONIVA [Suspect]
     Dosage: UNK
     Dates: start: 2001, end: 2011
  5. ACTONEL [Suspect]
     Dosage: UNK
     Dates: start: 2001, end: 2011

REACTIONS (1)
  - Femur fracture [Unknown]
